FAERS Safety Report 21214122 (Version 2)
Quarter: 2022Q4

REPORT INFORMATION
  Report Type: Spontaneous
  Country: US (occurrence: US)
  Receive Date: 20220816
  Receipt Date: 20221011
  Transmission Date: 20230113
  Serious: No
  Sender: FDA-Public Use
  Company Number: US-SA-SAC20220810001594

PATIENT
  Age: 79 Year
  Sex: Female
  Weight: 57.606 kg

DRUGS (1)
  1. DUPIXENT [Suspect]
     Active Substance: DUPILUMAB
     Indication: Dermatitis atopic
     Dosage: 300 MG, QOW
     Route: 058
     Dates: start: 20220701

REACTIONS (15)
  - Fibromyalgia [Unknown]
  - Stress [Unknown]
  - Pain [Unknown]
  - Feeling hot [Unknown]
  - Illness [Unknown]
  - Vomiting [Unknown]
  - Sleep disorder [Unknown]
  - Gait disturbance [Unknown]
  - Urticaria [Unknown]
  - Hypersensitivity [Recovering/Resolving]
  - Condition aggravated [Unknown]
  - Arthralgia [Unknown]
  - Rash [Unknown]
  - Erythema [Recovering/Resolving]
  - Dermatitis atopic [Unknown]

NARRATIVE: CASE EVENT DATE: 20220101
